FAERS Safety Report 9221616 (Version 1)
Quarter: 2013Q1

REPORT INFORMATION
  Report Type: Spontaneous
  Country: US (occurrence: None)
  Receive Date: 20120831
  Receipt Date: 20120831
  Transmission Date: 20140127
  Serious: No
  Sender: FDA-Public Use
  Company Number: 1000036704

PATIENT
  Age: 67 Year
  Sex: Male

DRUGS (7)
  1. DALIRESP [Suspect]
     Indication: BRONCHITIS CHRONIC
     Route: 048
     Dates: start: 20120625
  2. ADVAIR (SERETIDE) [Concomitant]
  3. SINGULAIR [Concomitant]
  4. SPIRIVA (TIOTROPIUM BROMIDE) [Concomitant]
  5. CLONIDINE (CLONIDINE) (CLONIDINE) [Concomitant]
  6. AMLODIPINE(AMLODIPINE)(AMLODIPINE) [Concomitant]
  7. CLOBETASOL (CLOBETASOL) (CLOBETASOL) [Concomitant]

REACTIONS (1)
  - Dyspnoea [None]
